FAERS Safety Report 19114767 (Version 9)
Quarter: 2024Q1

REPORT INFORMATION
  Report Type: Spontaneous
  Country: US (occurrence: US)
  Receive Date: 20210409
  Receipt Date: 20240223
  Transmission Date: 20240410
  Serious: Yes (Hospitalization, Other)
  Sender: FDA-Public Use
  Company Number: US-PFIZER INC-2019279168

PATIENT
  Age: 82 Year
  Sex: Female
  Weight: 77.098 kg

DRUGS (7)
  1. XELJANZ [Suspect]
     Active Substance: TOFACITINIB CITRATE
     Indication: Arthritis
     Dosage: 5MG TAKE 2 TABLET
  2. XELJANZ [Suspect]
     Active Substance: TOFACITINIB CITRATE
     Dosage: 5 MG
  3. XELJANZ [Suspect]
     Active Substance: TOFACITINIB CITRATE
     Dosage: 5 MG, 2X/DAY
     Dates: end: 20240118
  4. BACLOFEN [Concomitant]
     Active Substance: BACLOFEN
     Dosage: 10MG 2X PER DAY; OVER 15 YEARS AGO
  5. METHOTREXATE [Concomitant]
     Active Substance: METHOTREXATE
     Dosage: 2.5 MG, WEEKLY 2.5 MG INJECTION 1X PER WEEK; OVER 10 YEARS AGO
  6. MODAFINIL [Concomitant]
     Active Substance: MODAFINIL
     Dosage: 100MG 1 PER DAY; OVER 15 YEARS AGO
  7. PREDNISOLONE [Concomitant]
     Active Substance: PREDNISOLONE
     Dosage: 5MG PER DAY; OVER 10 YEARS AGO

REACTIONS (8)
  - Staphylococcal infection [Recovered/Resolved]
  - Localised infection [Recovered/Resolved]
  - Foot operation [Recovered/Resolved]
  - Intentional product misuse [Not Recovered/Not Resolved]
  - Confusional state [Recovered/Resolved]
  - Memory impairment [Not Recovered/Not Resolved]
  - Blood pressure abnormal [Not Recovered/Not Resolved]
  - Cognitive disorder [Not Recovered/Not Resolved]
